FAERS Safety Report 16038747 (Version 1)
Quarter: 2019Q1

REPORT INFORMATION
  Report Type: Spontaneous
  Country: DK (occurrence: DK)
  Receive Date: 20190305
  Receipt Date: 20190305
  Transmission Date: 20190418
  Serious: Yes (Disabling)
  Sender: FDA-Public Use
  Company Number: DK-MYLANLABS-2019M1013287

PATIENT
  Sex: Female

DRUGS (4)
  1. PAMOL [Concomitant]
     Active Substance: ACETAMINOPHEN
     Indication: ARTHRALGIA
     Route: 048
  2. NABUMETON [Concomitant]
     Indication: ARTHRALGIA
     Dosage: UNK
     Dates: start: 201312
  3. RELIFEX [Suspect]
     Active Substance: NABUMETONE
     Indication: ARTHRALGIA
     Dosage: 2-3 TABLETS (RARELY UPPTO 4 TABLETS)
     Route: 048
  4. NABUMETON [Concomitant]
     Dosage: UNK
     Dates: start: 201407

REACTIONS (24)
  - Erysipelas [Recovered/Resolved with Sequelae]
  - Gastrointestinal disorder [Not Recovered/Not Resolved]
  - Rosacea [Unknown]
  - Skin texture abnormal [Not Recovered/Not Resolved]
  - Skin warm [Not Recovered/Not Resolved]
  - Fluid retention [Not Recovered/Not Resolved]
  - Adverse event [Unknown]
  - Pharyngeal oedema [Not Recovered/Not Resolved]
  - Erythema [Not Recovered/Not Resolved]
  - Joint swelling [Not Recovered/Not Resolved]
  - Burning sensation [Unknown]
  - Dry mouth [Not Recovered/Not Resolved]
  - Dyspnoea [Not Recovered/Not Resolved]
  - Malaise [Unknown]
  - Hot flush [Unknown]
  - Peripheral swelling [Not Recovered/Not Resolved]
  - Pyrexia [Unknown]
  - Rash erythematous [Not Recovered/Not Resolved]
  - Scar [Not Recovered/Not Resolved]
  - Lethargy [Unknown]
  - Impaired work ability [Not Recovered/Not Resolved]
  - Insomnia [Unknown]
  - Rash [Unknown]
  - Oedema peripheral [Not Recovered/Not Resolved]

NARRATIVE: CASE EVENT DATE: 201706
